FAERS Safety Report 7818247-0 (Version None)
Quarter: 2011Q4

REPORT INFORMATION
  Report Type: 
  Country: None (occurrence: None)
  Receive Date: 20111013
  Receipt Date: 20111006
  Transmission Date: 20120403
  Serious: Yes (Hospitalization)
  Sender: FDA-Public Use
  Company Number: 2011SP032417

PATIENT
  Age: 37 Year
  Sex: Female
  Weight: 90 kg

DRUGS (2)
  1. BROMO-KIN [Concomitant]
  2. NEXPLANON [Suspect]
     Indication: CONTRACEPTION
     Dosage: 1 DF
     Dates: start: 20110430, end: 20110701

REACTIONS (2)
  - IMPLANT SITE ABSCESS [None]
  - STAPHYLOCOCCAL INFECTION [None]
